FAERS Safety Report 6252832-5 (Version None)
Quarter: 2009Q3

REPORT INFORMATION
  Report Type: 
  Country: None (occurrence: None)
  Receive Date: 20090701
  Receipt Date: 20090622
  Transmission Date: 20100115
  Serious: Yes (Hospitalization)
  Sender: FDA-Public Use
  Company Number: US-ELI_LILLY_AND_COMPANY-US200906006633

PATIENT
  Sex: Male
  Weight: 104 kg

DRUGS (15)
  1. BYETTA [Suspect]
     Indication: TYPE 2 DIABETES MELLITUS
     Dosage: 5 UG, 2/D
     Route: 058
     Dates: start: 20070101, end: 20070101
  2. BYETTA [Suspect]
     Dosage: 10 UG, 2/D
     Route: 058
     Dates: start: 20070101, end: 20080601
  3. BYETTA [Suspect]
     Dosage: 10 UG, 2/D
     Route: 058
     Dates: start: 20090601
  4. METFORMIN [Concomitant]
     Indication: TYPE 2 DIABETES MELLITUS
     Dosage: 500 MG, 2/D
     Route: 048
     Dates: end: 20080101
  5. METFORMIN [Concomitant]
     Dosage: 1000 MG, 2/D
     Route: 048
     Dates: start: 20090601
  6. GLIMEPIRIDE [Concomitant]
     Indication: TYPE 2 DIABETES MELLITUS
     Dosage: 2 MG, DAILY (1/D)
     Route: 048
  7. GLIMEPIRIDE [Concomitant]
     Dosage: 2 MG, 2/D
     Dates: start: 20080101
  8. ASPIRIN [Concomitant]
     Indication: CARDIAC DISORDER
     Dosage: 325 MG, DAILY (1/D)
     Route: 048
     Dates: start: 20070101
  9. LIPOFENE [Concomitant]
     Dosage: 150 MG, DAILY (1/D)
     Dates: start: 20090301
  10. METOPROLOL SUCCINATE [Concomitant]
     Indication: CARDIAC DISORDER
     Dosage: 50 MG, 2/D
     Route: 048
     Dates: start: 20070101
  11. CILOSTAZOL [Concomitant]
     Indication: CARDIAC DISORDER
     Dosage: 100 MG, 2/D
     Route: 048
     Dates: start: 20070101
  12. LISINOPRIL [Concomitant]
     Indication: CARDIAC DISORDER
     Dosage: 10 MG, DAILY (1/D)
     Route: 048
     Dates: start: 20070101
  13. SIMVASTATIN [Concomitant]
     Indication: CARDIAC DISORDER
     Dosage: 40 MG, EACH EVENING
     Route: 048
     Dates: start: 20070101
  14. PLAVIX [Concomitant]
     Dosage: 75 MG, DAILY (1/D)
     Route: 048
     Dates: start: 20070101
  15. JANUMET [Concomitant]
     Indication: TYPE 2 DIABETES MELLITUS
     Dosage: UNK, 2/D
     Dates: start: 20080101, end: 20090601

REACTIONS (3)
  - BLOOD GLUCOSE INCREASED [None]
  - INTENTIONAL DRUG MISUSE [None]
  - MYOCARDIAL INFARCTION [None]
